FAERS Safety Report 15255790 (Version 1)
Quarter: 2018Q3

REPORT INFORMATION
  Report Type: Spontaneous
  Country: ZA (occurrence: ZA)
  Receive Date: 20180808
  Receipt Date: 20180808
  Transmission Date: 20181010
  Serious: Yes (Hospitalization)
  Sender: FDA-Public Use
  Company Number: ZA-PFIZER INC-2018316526

PATIENT
  Age: 66 Year
  Sex: Female

DRUGS (7)
  1. GALVUS MET [Suspect]
     Active Substance: METFORMIN HYDROCHLORIDE\VILDAGLIPTIN
     Dosage: UNK
  2. NUZAK [Suspect]
     Active Substance: FLUOXETINE HYDROCHLORIDE
     Dosage: UNK
  3. ZARTAN CO [Suspect]
     Active Substance: HYDROCHLOROTHIAZIDE\LOSARTAN POTASSIUM
     Dosage: UNK
  4. ASPAVOR [Suspect]
     Active Substance: ATORVASTATIN
     Dosage: UNK
  5. BIO ATENOLOL [Suspect]
     Active Substance: ATENOLOL
     Dosage: UNK
  6. CLOPIDOGREL [Suspect]
     Active Substance: CLOPIDOGREL BISULFATE
  7. HUMULIN NOS [Suspect]
     Active Substance: INSULIN HUMAN
     Dosage: UNK

REACTIONS (1)
  - Anxiety [Unknown]
